FAERS Safety Report 5027068-6 (Version None)
Quarter: 2006Q2

REPORT INFORMATION
  Report Type: 
  Country: None (occurrence: None)
  Receive Date: 20060609
  Receipt Date: 20060601
  Transmission Date: 20061013
  Serious: Yes (Hospitalization)
  Sender: FDA-Public Use
  Company Number: 2006071201

PATIENT
  Age: 89 Year
  Sex: Female

DRUGS (12)
  1. SPIRONOLACTONE [Suspect]
     Indication: HYPERTENSION
     Dosage: ORAL
     Route: 048
     Dates: start: 20040801, end: 20041031
  2. CAPTOPRIL [Suspect]
     Indication: ILL-DEFINED DISORDER
     Dosage: ORAL
     Route: 048
     Dates: start: 20040901
  3. RISPERDAL [Concomitant]
  4. SELOKEN ZOC (METOPROLOL SUCCINATE) [Concomitant]
  5. LANSOPRAZOLE [Concomitant]
  6. CITALOPRAM HYDROBROMIDE [Concomitant]
  7. DIGOXIN [Concomitant]
  8. WARFARIN SODIUM [Concomitant]
  9. NITRAZEPAM [Concomitant]
  10. FUROSEMIDE [Concomitant]
  11. ISOSORBIDE MONONITRATE [Concomitant]
  12. ALLOPURINOL [Concomitant]

REACTIONS (2)
  - BLOOD CREATININE INCREASED [None]
  - CHEST PAIN [None]
